FAERS Safety Report 12567091 (Version 7)
Quarter: 2017Q1

REPORT INFORMATION
  Report Type: Spontaneous
  Country: US (occurrence: US)
  Receive Date: 20160718
  Receipt Date: 20170201
  Transmission Date: 20170428
  Serious: No
  Sender: FDA-Public Use
  Company Number: US-PFIZER INC-2016302550

PATIENT
  Age: 56 Year
  Sex: Female

DRUGS (8)
  1. IBRANCE [Suspect]
     Active Substance: PALBOCICLIB
     Indication: BREAST CANCER FEMALE
     Dosage: 125 MG, CYCLIC (DAILY FOR 21 DAYS THEN 7 DAYS OFF, REPEAT EVERY 28 DAYS) [EVERY DAY FOR 21 DAYS]
     Route: 048
  2. FASLODEX [Concomitant]
     Active Substance: FULVESTRANT
     Indication: BREAST CANCER FEMALE
     Dosage: UNK
     Dates: start: 20160523
  3. VITAMIN B12 [Concomitant]
     Active Substance: CYANOCOBALAMIN
     Dosage: UNK
  4. MULTIVITAMINS [Concomitant]
     Active Substance: VITAMINS
  5. GABAPENTIN. [Concomitant]
     Active Substance: GABAPENTIN
     Dosage: UNK
  6. CALCIUM [Concomitant]
     Active Substance: CALCIUM
     Dosage: UNK
  7. XGEVA [Concomitant]
     Active Substance: DENOSUMAB
     Dosage: UNK
  8. VITAMIN D3 [Concomitant]
     Active Substance: CHOLECALCIFEROL
     Dosage: UNK

REACTIONS (37)
  - Depressed mood [Unknown]
  - Dysuria [Unknown]
  - White blood cell count decreased [Unknown]
  - Contusion [Unknown]
  - Ligament sprain [Unknown]
  - Vision blurred [Unknown]
  - Poor quality drug administered [Unknown]
  - Hot flush [Unknown]
  - Photophobia [Unknown]
  - Eye irritation [Unknown]
  - Dry skin [Unknown]
  - Initial insomnia [Unknown]
  - Urinary incontinence [Unknown]
  - Increased tendency to bruise [Unknown]
  - Bone pain [Unknown]
  - Incorrect product storage [Unknown]
  - Dry mouth [Unknown]
  - Fatigue [Unknown]
  - Back pain [Unknown]
  - Balance disorder [Unknown]
  - Hyperhidrosis [Unknown]
  - Dry throat [Unknown]
  - Laceration [Unknown]
  - Skin sensitisation [Unknown]
  - Nasal dryness [Unknown]
  - Lacrimation increased [Unknown]
  - Fall [Unknown]
  - Skin discolouration [Unknown]
  - Nail disorder [Unknown]
  - Vomiting [Unknown]
  - Nail bed disorder [Unknown]
  - Dehydration [Unknown]
  - Nail bed bleeding [Unknown]
  - Tearfulness [Unknown]
  - Asthenia [Unknown]
  - Pain [Unknown]
  - Cardiovascular disorder [Unknown]
